FAERS Safety Report 10180157 (Version 2)
Quarter: 2014Q2

REPORT INFORMATION
  Report Type: Spontaneous
  Country: US (occurrence: US)
  Receive Date: 20140519
  Receipt Date: 20140527
  Transmission Date: 20141212
  Serious: No
  Sender: FDA-Public Use
  Company Number: US-009507513-1405USA002889

PATIENT
  Sex: Male
  Weight: 84.35 kg

DRUGS (6)
  1. CLARITIN-D-12 [Suspect]
     Indication: SEASONAL ALLERGY
     Dosage: UNK, QD
     Route: 048
     Dates: start: 2014
  2. CLARITIN-D-12 [Suspect]
     Indication: RHINITIS
  3. ZYRTEC [Concomitant]
     Indication: HYPERSENSITIVITY
     Dosage: UNK, UNKNOWN
  4. ASTELIN (AZELASTINE HYDROCHLORIDE) [Concomitant]
     Indication: HYPERSENSITIVITY
     Dosage: UNK, UNKNOWN
  5. ZANTAC [Concomitant]
     Indication: DYSPEPSIA
     Dosage: UNK, UNKNOWN
  6. EPIDUO [Concomitant]
     Indication: RASH MACULAR
     Dosage: UNK, UNKNOWN

REACTIONS (3)
  - Drug interaction [Unknown]
  - Expired product administered [Unknown]
  - Drug effect incomplete [Unknown]
